FAERS Safety Report 7274426-5 (Version None)
Quarter: 2011Q1

REPORT INFORMATION
  Report Type: 
  Country: None (occurrence: None)
  Receive Date: 20110204
  Receipt Date: 20110125
  Transmission Date: 20110831
  Serious: Yes (Other)
  Sender: FDA-Public Use
  Company Number: JP-JNJFOC-20100802663

PATIENT
  Sex: Female
  Weight: 42 kg

DRUGS (6)
  1. REMICADE [Suspect]
     Indication: PRODUCT USED FOR UNKNOWN INDICATION
     Route: 042
  2. REMICADE [Suspect]
     Route: 042
  3. PREDNISONE [Concomitant]
     Dosage: AUG-2008 OR EARLIER
  4. ASPARA-CA [Concomitant]
     Dosage: AUG-2008 OR EARLIER
     Route: 048
  5. METHOTREXATE [Suspect]
     Indication: RHEUMATOID ARTHRITIS
     Dosage: AUG-2008 OR EARLIER
     Route: 048
  6. ALFAROL [Concomitant]
     Dosage: AUG-2008 OR EARLIER
     Route: 048

REACTIONS (2)
  - NASOPHARYNGITIS [None]
  - LYMPHOMA [None]
